FAERS Safety Report 25994937 (Version 2)
Quarter: 2025Q4

REPORT INFORMATION
  Report Type: Report from Study
  Country: EU (occurrence: EU)
  Receive Date: 20251104
  Receipt Date: 20251107
  Transmission Date: 20260118
  Serious: Yes (Life-Threatening, Hospitalization, Other)
  Sender: JOHNSON AND JOHNSON
  Company Number: EU-JNJFOC-20250525421

PATIENT
  Age: 82 Year
  Sex: Male
  Weight: 80.0 kg

DRUGS (3)
  1. TECLISTAMAB [Suspect]
     Active Substance: TECLISTAMAB
     Indication: Plasma cell myeloma
     Dosage: THERAPY END DATE: 14-NOV-2024
     Dates: start: 20241114
  2. TECLISTAMAB [Suspect]
     Active Substance: TECLISTAMAB
     Dosage: THERAPY END DATE: 17-NOV-2024
     Dates: start: 20241117
  3. TECLISTAMAB [Suspect]
     Active Substance: TECLISTAMAB
     Dosage: THERAPY END DATE: 20-NOV-2024
     Dates: start: 20241120

REACTIONS (7)
  - Lower respiratory tract infection [Recovered/Resolved]
  - Cardiac failure [Recovered/Resolved]
  - Respiratory tract infection [Recovered/Resolved]
  - Fatigue [Recovering/Resolving]
  - Cough [Unknown]
  - Respiratory tract infection [Recovered/Resolved]
  - Bundle branch block left [Recovered/Resolved]

NARRATIVE: CASE EVENT DATE: 20250314
